FAERS Safety Report 7026529-8 (Version None)
Quarter: 2010Q4

REPORT INFORMATION
  Report Type: 
  Country: None (occurrence: None)
  Receive Date: 20101004
  Receipt Date: 20100929
  Transmission Date: 20110411
  Serious: Yes (Other)
  Sender: FDA-Public Use
  Company Number: GB-BRISTOL-MYERS SQUIBB COMPANY-15313737

PATIENT
  Age: 4 Decade
  Sex: Male

DRUGS (1)
  1. REYATAZ [Suspect]
     Dates: start: 20090707

REACTIONS (1)
  - ARRHYTHMIA [None]
